FAERS Safety Report 13323983 (Version 1)
Quarter: 2017Q1

REPORT INFORMATION
  Report Type: Spontaneous
  Country: JP (occurrence: JP)
  Receive Date: 20170310
  Receipt Date: 20170310
  Transmission Date: 20170428
  Serious: Yes (Other)
  Sender: FDA-Public Use
  Company Number: JP-TEVA-746204ROM

PATIENT
  Age: 50 Year
  Sex: Male

DRUGS (8)
  1. PREDNISOLONE. [Suspect]
     Active Substance: PREDNISOLONE
     Dosage: 10 MILLIGRAM DAILY;
     Route: 048
  2. CALCIUM CARBONATE. [Concomitant]
     Active Substance: CALCIUM CARBONATE
     Indication: HYPOCALCIURIA
     Route: 048
  3. PREDNISOLONE. [Suspect]
     Active Substance: PREDNISOLONE
     Indication: OSTEOSCLEROSIS
     Dosage: 50 MILLIGRAM DAILY;
     Route: 048
  4. SOFOSBUVIR [Concomitant]
     Active Substance: SOFOSBUVIR
     Indication: OSTEOSCLEROSIS
     Dosage: 400 MILLIGRAM DAILY;
     Route: 065
  5. METHYLPREDNISOLONE. [Suspect]
     Active Substance: METHYLPREDNISOLONE
     Indication: OSTEOSCLEROSIS
     Route: 042
  6. RIBAVIRIN. [Concomitant]
     Active Substance: RIBAVIRIN
     Indication: OSTEOSCLEROSIS
     Dosage: 800 MILLIGRAM DAILY;
     Route: 065
  7. PREDNISOLONE. [Suspect]
     Active Substance: PREDNISOLONE
     Indication: OSTEOSCLEROSIS
     Dosage: INITIAL DOSE UNKNOWN, THE DOSE INCREASED UP TO 50MG AND THEN WAS SLOWLY DECREASED DOWN TO 10MG/DAY
     Route: 048
  8. ALFACALCIDOL [Concomitant]
     Active Substance: ALFACALCIDOL
     Route: 065

REACTIONS (1)
  - Hepatitis C [Recovered/Resolved]
